FAERS Safety Report 4329992-6 (Version None)
Quarter: 2004Q1

REPORT INFORMATION
  Report Type: 
  Country: None (occurrence: None)
  Receive Date: 20040329
  Receipt Date: 20040315
  Transmission Date: 20041129
  Serious: No
  Sender: FDA-Public Use
  Company Number: 04P-167-0253939-00

PATIENT
  Age: 70 Year
  Sex: Female
  Weight: 73 kg

DRUGS (11)
  1. FERROGRAD (FERO-GRADUMET FILMTAB) [Suspect]
     Indication: DRUG USE FOR UNKNOWN INDICATION
     Dosage: UNKNOWN
     Route: 065
  2. THYROXINE [Suspect]
     Indication: HYPOTHYROIDISM
     Dosage: 0.1 MG, 1 IN 1 D
     Dates: start: 19990101
  3. CELECOXIB [Suspect]
     Indication: OSTEOARTHRITIS
     Dosage: 100-200 MG DAILY
     Dates: start: 20031215, end: 20040101
  4. ETORICOXIB [Suspect]
     Indication: OSTEOARTHRITIS
     Dosage: 90 MG, 1 IN 1 D; PER ORAL
     Route: 048
     Dates: start: 20030601, end: 20030701
  5. CALCIUM [Suspect]
     Indication: DRUG USE FOR UNKNOWN INDICATION
     Dosage: UNK
     Route: 065
  6. ACETAMINOPHEN [Concomitant]
  7. LANSOPRAZOLE [Concomitant]
  8. RANITIDINE [Concomitant]
  9. TRAMADOL HCL [Concomitant]
  10. ACETAMINOPHEN AND CODEINE PHOSPHATE [Concomitant]
  11. LEKOVIT CA [Concomitant]

REACTIONS (12)
  - CONDITION AGGRAVATED [None]
  - DIFFICULTY IN WALKING [None]
  - DRUG INTERACTION [None]
  - FLUID RETENTION [None]
  - GAIT DISTURBANCE [None]
  - MUSCLE CRAMP [None]
  - MUSCULAR WEAKNESS [None]
  - MYALGIA [None]
  - OSTEOARTHRITIS [None]
  - PAIN EXACERBATED [None]
  - SLEEP DISORDER [None]
  - SOMNOLENCE [None]
